FAERS Safety Report 6175118-6 (Version None)
Quarter: 2009Q2

REPORT INFORMATION
  Report Type: 
  Country: None (occurrence: None)
  Receive Date: 20090430
  Receipt Date: 20081222
  Transmission Date: 20091009
  Serious: No
  Sender: FDA-Public Use
  Company Number: US-ASTRAZENECA-2008UW28668

PATIENT
  Age: 61 Year
  Sex: Male
  Weight: 94.8 kg

DRUGS (21)
  1. NEXIUM [Suspect]
     Indication: GASTROOESOPHAGEAL REFLUX DISEASE
     Route: 048
  2. NEXIUM [Suspect]
     Route: 048
  3. MYLANTA [Concomitant]
  4. DULCOLAX [Concomitant]
  5. LOTREL [Concomitant]
  6. FLOMAX [Concomitant]
  7. OMNIHIST II - LA [Concomitant]
  8. ALLEGRA [Concomitant]
  9. QUININE SULFATE [Concomitant]
  10. TESTOSTERONE SHOT [Concomitant]
  11. NASONEX [Concomitant]
  12. XOPENEX [Concomitant]
  13. ASMANEX TWISTHALER [Concomitant]
  14. ALBUTEROL [Concomitant]
  15. PREDNISONE [Concomitant]
  16. AVINZA [Concomitant]
  17. DEMEROL [Concomitant]
  18. FLUOCINONIDE [Concomitant]
  19. NITROLINGUAL [Concomitant]
     Dosage: AS NEEDED
  20. EPIPEN [Concomitant]
     Dosage: AS NEEDED
  21. CELEBREX [Concomitant]

REACTIONS (1)
  - PAIN [None]
